FAERS Safety Report 23405141 (Version 2)
Quarter: 2024Q1

REPORT INFORMATION
  Report Type: Spontaneous
  Country: US (occurrence: US)
  Receive Date: 20240116
  Receipt Date: 20240216
  Transmission Date: 20240410
  Serious: No
  Sender: FDA-Public Use
  Company Number: US-PFIZER INC-2019089668

PATIENT
  Age: 41 Year
  Sex: Female

DRUGS (8)
  1. SOMAVERT [Suspect]
     Active Substance: PEGVISOMANT
     Indication: Acromegaly
     Dosage: 20 MG, 3 TIMES PER WEEK (UNDER THE SKIN )
     Route: 058
     Dates: start: 20230131
  2. SOMAVERT [Suspect]
     Active Substance: PEGVISOMANT
     Indication: Hypothalamo-pituitary disorder
  3. SOMAVERT [Suspect]
     Active Substance: PEGVISOMANT
     Indication: Gigantism
  4. LEVALBUTEROL [Concomitant]
     Active Substance: LEVALBUTEROL
     Dosage: UNK (45/ACT)
  5. MONTELUKAST [Concomitant]
     Active Substance: MONTELUKAST SODIUM
     Dosage: UNK
  6. MORPHINE SULFATE [Concomitant]
     Active Substance: MORPHINE SULFATE
     Dosage: UNK
  7. TIZANIDINE [Concomitant]
     Active Substance: TIZANIDINE
     Dosage: UNK
  8. TRAZODONE [Concomitant]
     Active Substance: TRAZODONE HYDROCHLORIDE
     Dosage: UNK

REACTIONS (2)
  - Migraine [Not Recovered/Not Resolved]
  - Off label use [Unknown]
